FAERS Safety Report 6224052-1 (Version None)
Quarter: 2009Q2

REPORT INFORMATION
  Report Type: 
  Country: None (occurrence: None)
  Receive Date: 20090612
  Receipt Date: 20090309
  Transmission Date: 20091009
  Serious: No
  Sender: FDA-Public Use
  Company Number: US-ABBOTT-09P-163-0561351-00

PATIENT
  Sex: Female
  Weight: 89.438 kg

DRUGS (4)
  1. HUMIRA [Suspect]
     Indication: PSORIATIC ARTHROPATHY
     Route: 058
     Dates: start: 20080801, end: 20090304
  2. HUMIRA [Suspect]
     Route: 058
     Dates: start: 20090304
  3. SULFASALAZINE [Concomitant]
     Indication: PSORIATIC ARTHROPATHY
  4. ETODOLAC [Concomitant]
     Indication: PSORIATIC ARTHROPATHY

REACTIONS (3)
  - INFLAMMATION [None]
  - PAIN [None]
  - PSORIATIC ARTHROPATHY [None]
